FAERS Safety Report 7534039-4 (Version None)
Quarter: 2011Q2

REPORT INFORMATION
  Report Type: 
  Country: None (occurrence: None)
  Receive Date: 20110608
  Receipt Date: 20060921
  Transmission Date: 20111010
  Serious: Yes (Other)
  Sender: FDA-Public Use
  Company Number: PHMT2006CA01853

PATIENT
  Sex: Male

DRUGS (7)
  1. MANERIX [Concomitant]
     Dosage: 225 MG, BID
  2. COLACE [Concomitant]
     Dosage: 100 MG, BID
  3. MAXERAN [Concomitant]
     Dosage: 10 MG, TID, PRN
  4. CLOZAPINE [Suspect]
     Dosage: 30 MG, QHS
     Route: 048
     Dates: start: 20060310
  5. SEROQUEL [Concomitant]
     Dosage: 50 MG, QID
  6. LOSEC                                   /CAN/ [Concomitant]
     Dosage: 20 MG, QD
  7. CLOZAPINE [Suspect]
     Dosage: 25 MG, TID
     Route: 048
     Dates: start: 20060310

REACTIONS (3)
  - HEPATITIS C [None]
  - NAUSEA [None]
  - HEPATIC CIRRHOSIS [None]
